FAERS Safety Report 7035360-9 (Version None)
Quarter: 2010Q4

REPORT INFORMATION
  Report Type: 
  Country: None (occurrence: None)
  Receive Date: 20101007
  Receipt Date: 20101007
  Transmission Date: 20110411
  Serious: No
  Sender: FDA-Public Use
  Company Number: None

PATIENT
  Age: 59 Year
  Sex: Female
  Weight: 72.5755 kg

DRUGS (1)
  1. MIRTAZAPINE [Suspect]
     Indication: THERAPY REGIMEN CHANGED
     Dosage: 1 TABLET BEDTIME PO
     Route: 048
     Dates: start: 20100921, end: 20101004

REACTIONS (4)
  - ABNORMAL DREAMS [None]
  - ARTHRALGIA [None]
  - BODY TEMPERATURE INCREASED [None]
  - MIDDLE INSOMNIA [None]
